FAERS Safety Report 7016294-2 (Version None)
Quarter: 2010Q3

REPORT INFORMATION
  Report Type: 
  Country: None (occurrence: None)
  Receive Date: 20100909
  Receipt Date: 20100113
  Transmission Date: 20110219
  Serious: No
  Sender: FDA-Public Use
  Company Number: 2010SP004241

PATIENT
  Age: 32 Year
  Sex: Female

DRUGS (4)
  1. SAPHRIS [Suspect]
     Indication: BIPOLAR DISORDER
     Dosage: 5 MG;BID;SL
     Route: 060
     Dates: start: 20091217, end: 20091224
  2. DEPAKOTE ER (CON.) [Concomitant]
  3. SERAQUEL (CON.) [Concomitant]
  4. KLONOPIN (CON.) [Concomitant]

REACTIONS (1)
  - OEDEMA PERIPHERAL [None]
